FAERS Safety Report 19065498 (Version 5)
Quarter: 2023Q2

REPORT INFORMATION
  Report Type: Spontaneous
  Country: AT (occurrence: AT)
  Receive Date: 20210327
  Receipt Date: 20230417
  Transmission Date: 20230722
  Serious: Yes (Hospitalization, Other)
  Sender: FDA-Public Use
  Company Number: NVSC2020AT120978

PATIENT
  Age: 54 Year
  Sex: Female
  Weight: 75 kg

DRUGS (56)
  1. CAPECITABINE [Suspect]
     Active Substance: CAPECITABINE
     Indication: HER2 positive breast cancer
     Dosage: 500MG (OTHER)
     Route: 048
     Dates: start: 20191126, end: 20191218
  2. CAPECITABINE [Suspect]
     Active Substance: CAPECITABINE
     Dosage: 500MG (OTHER)
     Route: 048
     Dates: start: 20191219
  3. METHOTREXATE [Suspect]
     Active Substance: METHOTREXATE
     Indication: HER2 positive breast cancer
     Dosage: 2.5 MG, 0.5 WEEK (MOST RECENT DOSE PRIOR TO AE 09/MAR/2020)
     Route: 048
     Dates: start: 20200219, end: 20200309
  4. PACLITAXEL [Suspect]
     Active Substance: PACLITAXEL
     Indication: HER2 positive breast cancer
     Dosage: 147.76 MG, QW
     Route: 042
     Dates: start: 20180328, end: 20180409
  5. PACLITAXEL [Suspect]
     Active Substance: PACLITAXEL
     Dosage: 177.17 MG, QW
     Route: 042
     Dates: start: 20180416, end: 20180508
  6. PACLITAXEL [Suspect]
     Active Substance: PACLITAXEL
     Dosage: 172.67 MG, QW
     Route: 042
     Dates: start: 20180515, end: 20180515
  7. PACLITAXEL [Suspect]
     Active Substance: PACLITAXEL
     Dosage: 147.76 MG, QW
     Route: 042
     Dates: start: 20180522, end: 20180529
  8. PACLITAXEL [Suspect]
     Active Substance: PACLITAXEL
     Dosage: 172.67 MG, QW
     Route: 042
     Dates: start: 20180605, end: 20190515
  9. PACLITAXEL [Suspect]
     Active Substance: PACLITAXEL
     Dosage: 177.17 MG, QW
     Route: 042
     Dates: start: 20180612, end: 20180612
  10. PACLITAXEL [Suspect]
     Active Substance: PACLITAXEL
     Dosage: 170.35 MG, QW
     Route: 042
     Dates: start: 20180626, end: 20180718
  11. PACLITAXEL [Suspect]
     Active Substance: PACLITAXEL
     Dosage: 177.51 MG, QW
     Route: 042
     Dates: start: 20181102, end: 20181123
  12. PACLITAXEL [Suspect]
     Active Substance: PACLITAXEL
     Dosage: 171.51 MG, QW
     Route: 042
     Dates: start: 20181207, end: 20181221
  13. PACLITAXEL [Suspect]
     Active Substance: PACLITAXEL
     Dosage: 172.67 MG, QW
     Route: 042
     Dates: start: 20190102, end: 20190515
  14. PACLITAXEL [Suspect]
     Active Substance: PACLITAXEL
     Dosage: 171.51 MG, QW
     Route: 042
     Dates: start: 20190109, end: 20190109
  15. PACLITAXEL [Suspect]
     Active Substance: PACLITAXEL
     Dosage: 172.67 MG, QW
     Route: 042
     Dates: start: 20190116, end: 20190116
  16. CYCLOPHOSPHAMIDE [Suspect]
     Active Substance: CYCLOPHOSPHAMIDE
     Indication: HER2 positive breast cancer
     Dosage: MOST RECENT DOSE PRIOR TO AE 09/MAR/2020
     Route: 048
     Dates: start: 20200219, end: 20200309
  17. CYCLOPHOSPHAMIDE [Suspect]
     Active Substance: CYCLOPHOSPHAMIDE
     Dosage: 2.5 MG
     Route: 048
  18. NAVELBINE [Suspect]
     Active Substance: VINORELBINE TARTRATE
     Indication: HER2 positive breast cancer
     Dosage: 50 MG (RECENT DOSE: 28/OCT/2019)
     Route: 048
     Dates: start: 20191011, end: 20191025
  19. VINORELBINE [Suspect]
     Active Substance: VINORELBINE TARTRATE
     Indication: HER2 positive breast cancer
     Dosage: 50 MG (RECENT DOSE: 28 OCT 2019)
     Route: 048
     Dates: start: 20191011, end: 20191025
  20. TRASTUZUMAB [Suspect]
     Active Substance: TRASTUZUMAB
     Indication: HER2 positive breast cancer
     Dosage: 600 MG, TIW (MOST RECENT DOSE PRIOR TO THE EVENT: 11/OCT/2019)
     Route: 042
     Dates: start: 20180328, end: 20180328
  21. TRASTUZUMAB [Suspect]
     Active Substance: TRASTUZUMAB
     Dosage: 378 MG, TIW
     Route: 042
     Dates: start: 20181123, end: 20181123
  22. TRASTUZUMAB [Suspect]
     Active Substance: TRASTUZUMAB
     Dosage: 378 MG, TIW
     Route: 042
     Dates: start: 20181214, end: 20190109
  23. TRASTUZUMAB [Suspect]
     Active Substance: TRASTUZUMAB
     Dosage: 384 MG, TIW
     Route: 042
     Dates: start: 20180515, end: 20180515
  24. TRASTUZUMAB [Suspect]
     Active Substance: TRASTUZUMAB
     Dosage: 378 MG
     Route: 042
     Dates: start: 20181102, end: 20181123
  25. TRASTUZUMAB [Suspect]
     Active Substance: TRASTUZUMAB
     Dosage: 600 MG, TIW
     Route: 042
     Dates: start: 20191011, end: 20191025
  26. TRASTUZUMAB [Suspect]
     Active Substance: TRASTUZUMAB
     Dosage: 372 MG
     Route: 042
     Dates: start: 20180626, end: 20181010
  27. TRASTUZUMAB [Suspect]
     Active Substance: TRASTUZUMAB
     Dosage: 408 MG, TIW
     Route: 042
     Dates: start: 20180423, end: 20180423
  28. TRASTUZUMAB [Suspect]
     Active Substance: TRASTUZUMAB
     Dosage: 1440 MG, TIW
     Route: 042
     Dates: start: 20190119, end: 20200129
  29. TAXOL [Suspect]
     Active Substance: PACLITAXEL
     Indication: HER2 positive breast cancer
     Dosage: 147.76 MG
     Route: 042
     Dates: start: 20180328, end: 20180409
  30. TAXOL [Suspect]
     Active Substance: PACLITAXEL
     Dosage: 177.17 MG
     Route: 042
     Dates: start: 20180416
  31. ADO-TRASTUZUMAB EMTANSINE [Suspect]
     Active Substance: ADO-TRASTUZUMAB EMTANSINE
     Indication: HER2 positive breast cancer
     Dosage: 230.4 MG
     Route: 042
     Dates: start: 20190131
  32. ADO-TRASTUZUMAB EMTANSINE [Suspect]
     Active Substance: ADO-TRASTUZUMAB EMTANSINE
     Dosage: DOSE ON 17/MAY/2019MOST RECENT DOSE PRIOR TO THE EVENT: 28/JUN/2019
     Route: 042
     Dates: start: 20190131, end: 20190517
  33. ADO-TRASTUZUMAB EMTANSINE [Suspect]
     Active Substance: ADO-TRASTUZUMAB EMTANSINE
     Dosage: 230.4 MG, Q3W (2.5 MG, 0.5 WEEK (MOST RECENT DOSE PRIOR TO AE 09/MAR/2020)
     Route: 042
     Dates: start: 20210228
  34. ABRAXANE [Suspect]
     Active Substance: PACLITAXEL
     Indication: HER2 positive breast cancer
     Dosage: 177.17 MG
     Route: 042
     Dates: start: 20180416
  35. PERTUZUMAB [Suspect]
     Active Substance: PERTUZUMAB
     Indication: HER2 positive breast cancer
     Dosage: 840 MG, TIW (MOST RECENT DOSE PRIOR TO THE EVENT: 14/DEC/2018, 11/OCT/2019)
     Route: 042
     Dates: start: 20180328, end: 20180328
  36. PERTUZUMAB [Suspect]
     Active Substance: PERTUZUMAB
     Dosage: 420 MG, TIW
     Route: 042
     Dates: start: 20181214, end: 20190109
  37. PERTUZUMAB [Suspect]
     Active Substance: PERTUZUMAB
     Dosage: 420 MG, 3 WEEKS
     Route: 042
     Dates: start: 20180423, end: 20180423
  38. NERATINIB [Suspect]
     Active Substance: NERATINIB
     Indication: HER2 positive breast cancer
     Dosage: 1440 MG,QD
     Route: 048
     Dates: start: 20200108, end: 20200118
  39. NERATINIB [Suspect]
     Active Substance: NERATINIB
     Dosage: 1440 MG,QD
     Route: 048
     Dates: start: 20200119, end: 20200129
  40. CALCIUM CARBONATE\CHOLECALCIFEROL [Concomitant]
     Active Substance: CALCIUM CARBONATE\CHOLECALCIFEROL
     Indication: Product used for unknown indication
     Dosage: UNK (ONGOING = CHECKED)
     Route: 065
     Dates: start: 20190425
  41. DEXPANTHENOL\HYALURONATE SODIUM [Concomitant]
     Active Substance: DEXPANTHENOL\HYALURONATE SODIUM
     Indication: Conjunctivitis
     Dosage: UNK
     Route: 065
     Dates: start: 20180619
  42. DEXAMETHASONE [Concomitant]
     Active Substance: DEXAMETHASONE
     Indication: Product used for unknown indication
     Dosage: UNK
     Route: 065
     Dates: start: 20190628, end: 20190830
  43. PANTOPRAZOLE SODIUM [Concomitant]
     Active Substance: PANTOPRAZOLE SODIUM
     Indication: Product used for unknown indication
     Dosage: ONGOING = CHECKED
     Route: 065
     Dates: start: 20191011
  44. KYTRIL [Concomitant]
     Active Substance: GRANISETRON HYDROCHLORIDE
     Indication: Product used for unknown indication
     Dosage: UNK (ONGOING = NOT CHECKED)
     Route: 065
     Dates: start: 20190628, end: 20190830
  45. OCTENIDINE\PHENOXYETHANOL [Concomitant]
     Active Substance: OCTENIDINE\PHENOXYETHANOL
     Indication: Onycholysis
     Dosage: UNK (UNK)
     Route: 065
     Dates: start: 20180725
  46. DEXPANTHENOL [Concomitant]
     Active Substance: DEXPANTHENOL
     Indication: Onycholysis
     Dosage: UNK (UNK)
     Route: 065
     Dates: start: 20180725
  47. DEXPANTHENOL [Concomitant]
     Active Substance: DEXPANTHENOL
     Indication: Conjunctivitis
  48. LOPERAMIDE HYDROCHLORIDE [Concomitant]
     Active Substance: LOPERAMIDE HYDROCHLORIDE
     Indication: Product used for unknown indication
     Dosage: UNK (UNK)
     Route: 065
     Dates: start: 20200108, end: 20200113
  49. XGEVA [Concomitant]
     Active Substance: DENOSUMAB
     Indication: Product used for unknown indication
     Dosage: UNK (UNK)
     Route: 065
     Dates: start: 20191219, end: 20200410
  50. NOVALGINA [Concomitant]
     Active Substance: ACETAMINOPHEN\CAFFEINE
     Indication: Product used for unknown indication
     Dosage: UNK (UNK)
     Route: 065
     Dates: start: 20200224, end: 20200410
  51. HYDROMORPHONE HYDROCHLORIDE [Concomitant]
     Active Substance: HYDROMORPHONE HYDROCHLORIDE
     Indication: Product used for unknown indication
     Dosage: UNK (UNK)
     Route: 065
     Dates: start: 20200228, end: 20200410
  52. HYDROMORPHONE HYDROCHLORIDE [Concomitant]
     Active Substance: HYDROMORPHONE HYDROCHLORIDE
     Dosage: UNK (UNK)
     Route: 065
     Dates: start: 20200228, end: 20200311
  53. HYDROMORPHONE HYDROCHLORIDE [Concomitant]
     Active Substance: HYDROMORPHONE HYDROCHLORIDE
     Dosage: UNK (UNK)
     Route: 065
     Dates: start: 20200311, end: 20200410
  54. HYDROMORPHONE HYDROCHLORIDE [Concomitant]
     Active Substance: HYDROMORPHONE HYDROCHLORIDE
     Indication: Product used for unknown indication
     Dosage: UNK
     Route: 065
  55. ZOFRAN ZYDIS LINGUAL [Concomitant]
     Indication: Product used for unknown indication
     Dosage: UNK
     Route: 065
  56. OCTENIDINE HYDROCHLORIDE [Concomitant]
     Active Substance: OCTENIDINE HYDROCHLORIDE
     Indication: Onycholysis
     Dosage: UNK
     Route: 065
     Dates: start: 20180725

REACTIONS (11)
  - Intentional product use issue [Unknown]
  - Dyspnoea [Recovered/Resolved]
  - Febrile neutropenia [Recovered/Resolved]
  - Overdose [Unknown]
  - Off label use [Unknown]
  - Tumour pain [Recovered/Resolved]
  - Breast cancer metastatic [Recovering/Resolving]
  - Pain of skin [Recovered/Resolved]
  - C-reactive protein increased [Recovered/Resolved]
  - Diarrhoea [Recovered/Resolved]
  - Stomatitis [Recovered/Resolved]

NARRATIVE: CASE EVENT DATE: 20190920
